FAERS Safety Report 24337356 (Version 2)
Quarter: 2024Q4

REPORT INFORMATION
  Report Type: Spontaneous
  Country: GR (occurrence: GR)
  Receive Date: 20240919
  Receipt Date: 20241005
  Transmission Date: 20250114
  Serious: Yes (Death, Hospitalization, Other)
  Sender: TEVA
  Company Number: GR-TEVA-VS-3242552

PATIENT
  Age: 45 Year
  Sex: Male

DRUGS (7)
  1. SORAFENIB [Suspect]
     Active Substance: SORAFENIB
     Indication: Poorly differentiated thyroid carcinoma
     Dosage: BRIDGING THERAPY
     Route: 065
     Dates: start: 202002
  2. SORAFENIB [Suspect]
     Active Substance: SORAFENIB
     Indication: Poorly differentiated thyroid carcinoma
     Route: 065
  3. LENVATINIB [Suspect]
     Active Substance: LENVATINIB
     Indication: Poorly differentiated thyroid carcinoma
     Route: 065
     Dates: start: 201707, end: 201905
  4. CABOZANTINIB [Suspect]
     Active Substance: CABOZANTINIB
     Indication: Poorly differentiated thyroid carcinoma
     Route: 065
  5. DABRAFENIB [Suspect]
     Active Substance: DABRAFENIB
     Indication: Poorly differentiated thyroid carcinoma
     Route: 048
  6. TRAMETINIB [Suspect]
     Active Substance: TRAMETINIB
     Indication: Poorly differentiated thyroid carcinoma
     Route: 048
  7. DENOSUMAB [Suspect]
     Active Substance: DENOSUMAB
     Indication: Poorly differentiated thyroid carcinoma
     Route: 065
     Dates: start: 202003, end: 202006

REACTIONS (7)
  - Palmar-plantar erythrodysaesthesia syndrome [Unknown]
  - Headache [Unknown]
  - Hypertension [Unknown]
  - Abdominal distension [Unknown]
  - Drug ineffective [Fatal]
  - Fatigue [Unknown]
  - Diarrhoea [Unknown]
